FAERS Safety Report 18130492 (Version 4)
Quarter: 2022Q1

REPORT INFORMATION
  Report Type: Spontaneous
  Country: CZ (occurrence: CZ)
  Receive Date: 20200810
  Receipt Date: 20220128
  Transmission Date: 20220423
  Serious: Yes (Other)
  Sender: FDA-Public Use
  Company Number: None

PATIENT
  Age: 62 Year
  Sex: Male
  Weight: 125 kg

DRUGS (19)
  1. FENTANYL [Suspect]
     Active Substance: FENTANYL
     Indication: Pain
     Route: 062
  2. TRAZODONE [Suspect]
     Active Substance: TRAZODONE HYDROCHLORIDE
     Indication: Depression
     Route: 065
  3. TAPENTADOL [Suspect]
     Active Substance: TAPENTADOL
     Indication: Pain
     Route: 065
  4. ACETAMINOPHEN\TRAMADOL [Suspect]
     Active Substance: ACETAMINOPHEN\TRAMADOL
     Indication: Pain
     Dosage: UP TO 225 MG TRAMADOL PER DAY
     Route: 065
  5. BUPRENORPHINE [Suspect]
     Active Substance: BUPRENORPHINE
     Indication: Pain
     Route: 062
  6. PREGABALIN [Suspect]
     Active Substance: PREGABALIN
     Indication: Pain
     Route: 065
  7. DULOXETINE [Suspect]
     Active Substance: DULOXETINE
     Indication: Product used for unknown indication
     Route: 065
  8. OXYCODONE [Suspect]
     Active Substance: OXYCODONE
     Indication: Pain
     Route: 065
  9. TRAMADOL [Suspect]
     Active Substance: TRAMADOL
     Indication: Pain
     Route: 065
  10. POLYETHYLENE GLYCOLS [Suspect]
     Active Substance: POLYETHYLENE GLYCOLS
     Indication: Constipation
     Route: 065
  11. DICLOFENAC [Suspect]
     Active Substance: DICLOFENAC
     Indication: Pain
     Dosage: AT A DOSE OF 100200 MG/WEEK
     Route: 065
  12. DICLOFENAC [Suspect]
     Active Substance: DICLOFENAC
     Dosage: AT A DOSE OF 100200 MG/WEEK
     Route: 065
  13. VENLAFAXINE [Suspect]
     Active Substance: VENLAFAXINE HYDROCHLORIDE
     Indication: Product used for unknown indication
     Route: 065
  14. NALOXONE HYDROCHLORIDE\OXYCODONE HYDROCHLORIDE [Suspect]
     Active Substance: NALOXONE HYDROCHLORIDE\OXYCODONE HYDROCHLORIDE
     Indication: Pain
     Route: 065
  15. LACTULOSE [Suspect]
     Active Substance: LACTULOSE
     Indication: Constipation
     Dosage: 250
     Route: 062
  16. CITALOPRAM [Suspect]
     Active Substance: CITALOPRAM HYDROBROMIDE
     Indication: Antidepressant therapy
     Route: 065
  17. GABAPENTIN [Suspect]
     Active Substance: GABAPENTIN
     Indication: Analgesic therapy
  18. GABAPENTIN [Suspect]
     Active Substance: GABAPENTIN
     Indication: Pain
  19. BISACODYL [Concomitant]
     Active Substance: BISACODYL
     Indication: Constipation
     Route: 065

REACTIONS (18)
  - Mental impairment [Unknown]
  - Application site hypersensitivity [Unknown]
  - Condition aggravated [Recovered/Resolved]
  - Constipation [Recovered/Resolved]
  - Abdominal pain [Unknown]
  - Drug ineffective [Unknown]
  - Functional gastrointestinal disorder [Recovering/Resolving]
  - Constipation [Recovered/Resolved]
  - Weight increased [Unknown]
  - Headache [Unknown]
  - Vomiting [Unknown]
  - Sedation [Unknown]
  - Dry mouth [Unknown]
  - Nausea [Unknown]
  - Flatulence [Unknown]
  - Quality of life decreased [Recovering/Resolving]
  - Application site reaction [Unknown]
  - Intentional overdose [Unknown]
